FAERS Safety Report 13705074 (Version 1)
Quarter: 2017Q2

REPORT INFORMATION
  Report Type: Spontaneous
  Country: US (occurrence: US)
  Receive Date: 20170629
  Receipt Date: 20170629
  Transmission Date: 20170830
  Serious: Yes (Other)
  Sender: FDA-Public Use
  Company Number: None

PATIENT
  Age: 40 Year
  Sex: Male
  Weight: 84 kg

DRUGS (1)
  1. REPATHA [Suspect]
     Active Substance: EVOLOCUMAB
     Indication: HYPERCHOLESTEROLAEMIA
     Dosage: ?          OTHER DOSE:MG;OTHER FREQUENCY:EVERY 14 DAYS;?
     Route: 058
     Dates: start: 20170414, end: 20170414

REACTIONS (3)
  - Depression [None]
  - Nervousness [None]
  - Facial paralysis [None]

NARRATIVE: CASE EVENT DATE: 20170415
